FAERS Safety Report 6745427-8 (Version None)
Quarter: 2010Q2

REPORT INFORMATION
  Report Type: 
  Country: None (occurrence: None)
  Receive Date: 20100528
  Receipt Date: 20100514
  Transmission Date: 20101027
  Serious: Yes (Life-Threatening, Hospitalization)
  Sender: FDA-Public Use
  Company Number: US-BAYER-200935380NA

PATIENT
  Age: 34 Year
  Sex: Female
  Weight: 64 kg

DRUGS (6)
  1. YAZ [Suspect]
     Indication: CONTRACEPTION
     Route: 048
     Dates: start: 20070501, end: 20070901
  2. SYNTHROID [Concomitant]
     Route: 065
     Dates: start: 20070627
  3. ADVIL LIQUI-GELS [Concomitant]
     Route: 048
  4. ANALGESICS [Concomitant]
     Indication: PAIN MANAGEMENT
     Route: 065
  5. LOVENOX [Concomitant]
     Route: 065
  6. COUMADIN [Concomitant]
     Route: 065

REACTIONS (5)
  - DEEP VEIN THROMBOSIS [None]
  - FATIGUE [None]
  - OEDEMA PERIPHERAL [None]
  - PAIN IN EXTREMITY [None]
  - PULMONARY EMBOLISM [None]
